FAERS Safety Report 22126390 (Version 1)
Quarter: 2023Q1

REPORT INFORMATION
  Report Type: Spontaneous
  Country: US (occurrence: US)
  Receive Date: 20230322
  Receipt Date: 20230322
  Transmission Date: 20230417
  Serious: No
  Sender: FDA-Public Use
  Company Number: US-PFIZER INC-PV202300051428

PATIENT

DRUGS (1)
  1. TOFACITINIB [Suspect]
     Active Substance: TOFACITINIB
     Dosage: 15 MG, DAILY (10 MG PLUS 5 MG DAILY)

REACTIONS (2)
  - Therapeutic response unexpected [Unknown]
  - Off label use [Unknown]
